FAERS Safety Report 22186882 (Version 2)
Quarter: 2023Q4

REPORT INFORMATION
  Report Type: Spontaneous
  Country: ES (occurrence: ES)
  Receive Date: 20230407
  Receipt Date: 20231120
  Transmission Date: 20240110
  Serious: Yes (Other)
  Sender: FDA-Public Use
  Company Number: ES-ROCHE-2733127

PATIENT
  Age: 44 Year
  Sex: Female
  Weight: 64 kg

DRUGS (4)
  1. CARBOPLATIN [Suspect]
     Active Substance: CARBOPLATIN
     Indication: Malignant peritoneal neoplasm
     Dosage: 765.98 MG
     Route: 042
     Dates: start: 20200916, end: 20210302
  2. ATEZOLIZUMAB [Suspect]
     Active Substance: ATEZOLIZUMAB
     Indication: Malignant peritoneal neoplasm
     Dosage: 840 MG.
     Route: 042
     Dates: start: 20200916, end: 20210713
  3. NIRAPARIB [Suspect]
     Active Substance: NIRAPARIB
     Indication: Malignant peritoneal neoplasm
     Dosage: 10 MG
     Route: 048
     Dates: start: 20210420, end: 20210801
  4. DOXORUBICIN [Suspect]
     Active Substance: DOXORUBICIN
     Indication: Malignant peritoneal neoplasm
     Dosage: 42.62 MG
     Route: 042
     Dates: start: 20200916, end: 20210302

REACTIONS (2)
  - Hyperthyroidism [Recovered/Resolved]
  - Palpitations [Recovered/Resolved]

NARRATIVE: CASE EVENT DATE: 20201103
